FAERS Safety Report 17826456 (Version 2)
Quarter: 2020Q2

REPORT INFORMATION
  Report Type: Other
  Country: FR (occurrence: FR)
  Receive Date: 20200526
  Receipt Date: 20200624
  Transmission Date: 20200714
  Serious: Yes (Life-Threatening, Hospitalization, Other)
  Sender: FDA-Public Use
  Company Number: FR-EMD SERONO-9164901

PATIENT
  Age: 89 Year
  Sex: Female

DRUGS (7)
  1. METFORMIN [Suspect]
     Active Substance: METFORMIN HYDROCHLORIDE
     Indication: TYPE 2 DIABETES MELLITUS
  2. RILMENIDINE [Suspect]
     Active Substance: RILMENIDINE
     Indication: HYPERTENSION
  3. VALSARTAN/HYDROCHLOROTHIAZIDE [Suspect]
     Active Substance: HYDROCHLOROTHIAZIDE\VALSARTAN
     Indication: HYPERTENSION
  4. MORPHINE [Suspect]
     Active Substance: MORPHINE
     Dosage: IMMEDIATE RELEASE
  5. MORPHINE [Suspect]
     Active Substance: MORPHINE
     Indication: BACK PAIN
     Dosage: LONG ACTING
  6. MELOXICAM. [Suspect]
     Active Substance: MELOXICAM
     Indication: BACK PAIN
  7. DICLOFENAC [Suspect]
     Active Substance: DICLOFENAC
     Indication: BACK PAIN
     Route: 061

REACTIONS (4)
  - Overdose [Unknown]
  - Lactic acidosis [Unknown]
  - Respiratory failure [Unknown]
  - Acute kidney injury [Recovering/Resolving]
